FAERS Safety Report 5967778-7 (Version None)
Quarter: 2008Q4

REPORT INFORMATION
  Report Type: 
  Country: None (occurrence: None)
  Receive Date: 20081126
  Receipt Date: 20081118
  Transmission Date: 20090506
  Serious: No
  Sender: FDA-Public Use
  Company Number: US-JNJFOC-20081104734

PATIENT
  Sex: Female
  Weight: 79.83 kg

DRUGS (2)
  1. DURAGESIC-100 [Suspect]
     Indication: COMPLEX REGIONAL PAIN SYNDROME
     Route: 062
  2. UNKNOWN MEDICATION [Concomitant]

REACTIONS (2)
  - DRUG ADMINISTERED AT INAPPROPRIATE SITE [None]
  - WRONG TECHNIQUE IN DRUG USAGE PROCESS [None]
